FAERS Safety Report 6398393-1 (Version None)
Quarter: 2009Q4

REPORT INFORMATION
  Report Type: 
  Country: None (occurrence: None)
  Receive Date: 20091013
  Receipt Date: 20091006
  Transmission Date: 20100525
  Serious: Yes (Other)
  Sender: FDA-Public Use
  Company Number: US-BAXTER-2009BH012612

PATIENT
  Age: 46 Year
  Sex: Male
  Weight: 90 kg

DRUGS (1)
  1. HEPARIN SODIUM INJECTION [Suspect]
     Indication: DRUG USE FOR UNKNOWN INDICATION
     Route: 042
     Dates: start: 20070803, end: 20070807

REACTIONS (4)
  - BLOOD PRESSURE FLUCTUATION [None]
  - DIZZINESS [None]
  - LOSS OF CONSCIOUSNESS [None]
  - RENAL FAILURE CHRONIC [None]
